FAERS Safety Report 17819617 (Version 3)
Quarter: 2020Q3

REPORT INFORMATION
  Report Type: Spontaneous
  Country: US (occurrence: US)
  Receive Date: 20200523
  Receipt Date: 20200713
  Transmission Date: 20201102
  Serious: Yes (Hospitalization, Other)
  Sender: FDA-Public Use
  Company Number: NVSC2020US141424

PATIENT
  Sex: Male

DRUGS (1)
  1. ZOLGENSMA [Suspect]
     Active Substance: ONASEMNOGENE ABEPARVOVEC-XIOI
     Indication: SPINAL MUSCULAR ATROPHY
     Dosage: UNK, ONCE/SINGLE
     Route: 042
     Dates: start: 20200327

REACTIONS (2)
  - Respiratory failure [Unknown]
  - Pyrexia [Unknown]
